FAERS Safety Report 12238957 (Version 1)
Quarter: 2016Q2

REPORT INFORMATION
  Report Type: Spontaneous
  Country: US (occurrence: US)
  Receive Date: 20160405
  Receipt Date: 20160405
  Transmission Date: 20160815
  Serious: Yes (Other)
  Sender: FDA-Public Use
  Company Number: US-PURDUE-USA-2016-0129621

PATIENT
  Age: 54 Year
  Sex: Female

DRUGS (2)
  1. OXYCODONE HCL TABLETS (RHODES 91-490) [Concomitant]
     Active Substance: OXYCODONE HYDROCHLORIDE
     Indication: BREAKTHROUGH PAIN
     Dosage: 1-2 TABLETS 30 MG, Q4H
     Route: 048
     Dates: start: 2015
  2. BUTRANS [Suspect]
     Active Substance: BUPRENORPHINE
     Indication: ANALGESIC THERAPY
     Dosage: 10 MCG/HR, WEEKLY
     Route: 062
     Dates: start: 20160311

REACTIONS (2)
  - Bipolar disorder [Unknown]
  - Drug ineffective [Not Recovered/Not Resolved]

NARRATIVE: CASE EVENT DATE: 20160311
